FAERS Safety Report 7557297-9 (Version None)
Quarter: 2011Q2

REPORT INFORMATION
  Report Type: 
  Country: None (occurrence: None)
  Receive Date: 20110620
  Receipt Date: 20081114
  Transmission Date: 20111010
  Serious: Yes (Hospitalization)
  Sender: FDA-Public Use
  Company Number: PHHY2008CA07062

PATIENT
  Sex: Male

DRUGS (1)
  1. SANDOSTATIN LAR [Suspect]
     Indication: CARCINOID SYNDROME
     Dosage: 30 MG, TIW
     Route: 030
     Dates: start: 20041116

REACTIONS (9)
  - SOMNOLENCE [None]
  - SPINAL FRACTURE [None]
  - HEART RATE IRREGULAR [None]
  - FALL [None]
  - OSTEOPOROSIS [None]
  - BONE DISORDER [None]
  - ASTHENIA [None]
  - ABASIA [None]
  - DIARRHOEA [None]
